FAERS Safety Report 21508364 (Version 1)
Quarter: 2022Q4

REPORT INFORMATION
  Report Type: Spontaneous
  Country: CN (occurrence: CN)
  Receive Date: 20221026
  Receipt Date: 20221026
  Transmission Date: 20230113
  Serious: Yes (Other)
  Sender: FDA-Public Use
  Company Number: CN-AMGEN-CHNSP2022181582

PATIENT
  Age: 17 Year
  Sex: Female

DRUGS (12)
  1. FILGRASTIM [Suspect]
     Active Substance: FILGRASTIM
     Indication: Prophylaxis
     Dosage: UNK
     Route: 065
  2. DECITABINE [Concomitant]
     Active Substance: DECITABINE
     Dosage: 50 MILLIGRAM, QD
  3. VENETOCLAX [Concomitant]
     Active Substance: VENETOCLAX
  4. SORAFENIB [Concomitant]
     Active Substance: SORAFENIB
  5. CLADRIBINE [Concomitant]
     Active Substance: CLADRIBINE
  6. IDARUBICIN [Concomitant]
     Active Substance: IDARUBICIN
  7. CYTARABINE [Concomitant]
     Active Substance: CYTARABINE
  8. GILTERITINIB [Concomitant]
     Active Substance: GILTERITINIB
  9. FLUDARABINE [Concomitant]
     Active Substance: FLUDARABINE PHOSPHATE
     Dosage: 30 MILLIGRAM/SQ. METER, QD (DAY 5 TO -3)
  10. CYCLOPHOSPHAMIDE [Concomitant]
     Active Substance: CYCLOPHOSPHAMIDE
     Dosage: 300 MILLIGRAM/SQ. METER, QD (DAY5 TO -3)
  11. ADRIAMYCIN [Concomitant]
     Active Substance: DOXORUBICIN HYDROCHLORIDE
  12. DOXORUBICIN [Concomitant]
     Active Substance: DOXORUBICIN

REACTIONS (2)
  - Acute myeloid leukaemia recurrent [Recovered/Resolved]
  - Cytokine release syndrome [Recovering/Resolving]
